FAERS Safety Report 13353842 (Version 1)
Quarter: 2017Q1

REPORT INFORMATION
  Report Type: Spontaneous
  Country: US (occurrence: US)
  Receive Date: 20170321
  Receipt Date: 20170321
  Transmission Date: 20170429
  Serious: No
  Sender: FDA-Public Use
  Company Number: US-PFIZER INC-2017104604

PATIENT
  Age: 65 Year
  Sex: Male

DRUGS (1)
  1. EMBEDA [Suspect]
     Active Substance: MORPHINE SULFATE\NALTREXONE HYDROCHLORIDE
     Dosage: UNK, UNK [MORPHINE SULFATE-20MG]/ [NALTREXONE HYDROCHLORIDE-0.38MG]
     Dates: start: 20170201, end: 20170301

REACTIONS (2)
  - Euphoric mood [Unknown]
  - Feeling abnormal [Unknown]
